FAERS Safety Report 8508450-9 (Version None)
Quarter: 2012Q2

REPORT INFORMATION
  Report Type: 
  Country: None (occurrence: None)
  Receive Date: 20120405
  Receipt Date: 20090406
  Transmission Date: 20120825
  Serious: Yes (Disabling, Other)
  Sender: FDA-Public Use
  Company Number: PHEH2009US00671

PATIENT
  Age: 77 Year
  Sex: Female

DRUGS (1)
  1. RECLAST [Suspect]
     Indication: OSTEOPENIA
     Dosage: 5 MG, INFUSION
     Dates: start: 20080909

REACTIONS (5)
  - JOINT SWELLING [None]
  - OSTEONECROSIS [None]
  - ERYTHEMA [None]
  - BONE DISORDER [None]
  - PAIN IN JAW [None]
